FAERS Safety Report 8230740-8 (Version None)
Quarter: 2012Q1

REPORT INFORMATION
  Report Type: 
  Country: None (occurrence: None)
  Receive Date: 20120322
  Receipt Date: 20120322
  Transmission Date: 20120608
  Serious: Yes (Death, Life-Threatening)
  Sender: FDA-Public Use
  Company Number: None

PATIENT
  Age: 77 Year
  Sex: Female
  Weight: 60.5 kg

DRUGS (1)
  1. DABIGATRAN [Suspect]
     Indication: TRANSIENT ISCHAEMIC ATTACK
     Dosage: 150 MG TWICE DAILY ORAL
     Route: 048
     Dates: start: 20120101

REACTIONS (12)
  - HEADACHE [None]
  - ACTIVATED PARTIAL THROMBOPLASTIN TIME PROLONGED [None]
  - SUBDURAL HAEMORRHAGE [None]
  - PAIN [None]
  - BRAIN HERNIATION [None]
  - NAUSEA [None]
  - VOMITING [None]
  - LETHARGY [None]
  - SOMNOLENCE [None]
  - GENERAL PHYSICAL HEALTH DETERIORATION [None]
  - DIALYSIS [None]
  - CEREBRAL HAEMORRHAGE [None]
